FAERS Safety Report 8882663 (Version 2)
Quarter: 2012Q4

REPORT INFORMATION
  Report Type: 
  Country: CH (occurrence: CH)
  Receive Date: 20121102
  Receipt Date: 20121128
  Transmission Date: 20130627
  Serious: Yes (Death)
  Sender: FDA-Public Use
  Company Number: PHHY2012CH099561

PATIENT
  Age: 38 Year
  Sex: Female

DRUGS (1)
  1. HEPARIN [Suspect]
     Indication: CEREBRAL VENOUS THROMBOSIS

REACTIONS (6)
  - Subarachnoid haemorrhage [Fatal]
  - Intracranial aneurysm [Fatal]
  - Altered state of consciousness [Fatal]
  - Musculoskeletal stiffness [Fatal]
  - Aneurysm [Fatal]
  - Intracranial pressure increased [Fatal]
